FAERS Safety Report 12641536 (Version 1)
Quarter: 2016Q3

REPORT INFORMATION
  Report Type: Spontaneous
  Country: JP (occurrence: JP)
  Receive Date: 20160810
  Receipt Date: 20160810
  Transmission Date: 20161109
  Serious: Yes (Other)
  Sender: FDA-Public Use
  Company Number: JP-PFIZER INC-2016372619

PATIENT
  Age: 41 Year
  Sex: Male

DRUGS (5)
  1. ALPRAZOLAM. [Suspect]
     Active Substance: ALPRAZOLAM
     Route: 048
  2. CHLORPROMAZINE. [Suspect]
     Active Substance: CHLORPROMAZINE
     Route: 048
  3. SULPIRIDE [Suspect]
     Active Substance: SULPIRIDE
     Route: 048
  4. BIPERIDEN [Suspect]
     Active Substance: BIPERIDEN
     Route: 048
  5. BROMAZEPAM [Suspect]
     Active Substance: BROMAZEPAM
     Route: 048

REACTIONS (10)
  - Overdose [Unknown]
  - Bedridden [Unknown]
  - Rhabdomyolysis [Unknown]
  - Altered state of consciousness [Unknown]
  - Suicide attempt [Unknown]
  - Toxicity to various agents [Unknown]
  - Pneumonia aspiration [Unknown]
  - Memory impairment [Unknown]
  - Cerebral infarction [Unknown]
  - Acute kidney injury [Unknown]
